FAERS Safety Report 7679705-5 (Version None)
Quarter: 2011Q3

REPORT INFORMATION
  Report Type: 
  Country: None (occurrence: None)
  Receive Date: 20110812
  Receipt Date: 20110803
  Transmission Date: 20111222
  Serious: Yes (Death, Life-Threatening)
  Sender: FDA-Public Use
  Company Number: DE-JNJFOC-20110208219

PATIENT
  Age: 84 Year
  Sex: Male
  Weight: 51 kg

DRUGS (12)
  1. HALDOL [Suspect]
     Route: 042
     Dates: start: 20100522, end: 20100522
  2. HALDOL [Suspect]
     Route: 042
     Dates: start: 20100525, end: 20100525
  3. RISPERDAL [Suspect]
     Route: 048
     Dates: start: 20100531
  4. JONOSTERIL S [Suspect]
     Indication: PRODUCT USED FOR UNKNOWN INDICATION
     Route: 042
     Dates: start: 20100519
  5. FUROSEMIDE [Concomitant]
     Route: 048
     Dates: start: 20100605
  6. RISPERDAL [Suspect]
     Indication: PRODUCT USED FOR UNKNOWN INDICATION
     Route: 048
     Dates: start: 20100520, end: 20100521
  7. HALDOL [Suspect]
     Route: 042
     Dates: start: 20100520, end: 20100520
  8. RISPERDAL [Suspect]
     Route: 048
     Dates: start: 20100522, end: 20100530
  9. HALDOL [Suspect]
     Indication: PRODUCT USED FOR UNKNOWN INDICATION
     Route: 042
     Dates: start: 20100605, end: 20100605
  10. FUROSEMIDE [Concomitant]
     Route: 048
     Dates: start: 20100606
  11. FERRO SANOL [Concomitant]
     Route: 048
     Dates: start: 20100519
  12. NOVAMINSULFON [Concomitant]
     Route: 048
     Dates: start: 20100519

REACTIONS (10)
  - CREPITATIONS [None]
  - DYSPNOEA [None]
  - GENERAL PHYSICAL HEALTH DETERIORATION [None]
  - INCORRECT ROUTE OF DRUG ADMINISTRATION [None]
  - RESTLESSNESS [None]
  - AGGRESSION [None]
  - DEATH [None]
  - OEDEMA PERIPHERAL [None]
  - DISTURBANCE IN SOCIAL BEHAVIOUR [None]
  - DELIRIUM [None]
